FAERS Safety Report 23065690 (Version 1)
Quarter: 2023Q4

REPORT INFORMATION
  Report Type: Other
  Country: TR (occurrence: TR)
  Receive Date: 20231014
  Receipt Date: 20231014
  Transmission Date: 20240109
  Serious: Yes (Other)
  Sender: FDA-Public Use
  Company Number: TR-Bion-012221

PATIENT
  Age: 35 Year
  Sex: Male

DRUGS (1)
  1. OXYBUTYNIN CHLORIDE [Suspect]
     Active Substance: OXYBUTYNIN CHLORIDE
     Indication: Euphoric mood
     Dosage: 80-120 MG/DAY

REACTIONS (3)
  - Drug abuse [Unknown]
  - Overdose [Unknown]
  - Psychotic disorder [Recovering/Resolving]
